FAERS Safety Report 6218533-4 (Version None)
Quarter: 2009Q2

REPORT INFORMATION
  Report Type: 
  Country: None (occurrence: None)
  Receive Date: 20090604
  Receipt Date: 20090604
  Transmission Date: 20091009
  Serious: Yes (Other)
  Sender: FDA-Public Use
  Company Number: None

PATIENT
  Age: 67 Year
  Sex: Female
  Weight: 81.1939 kg

DRUGS (1)
  1. HYDROCODONE BITARTRATE + ACETAMINOPHEN [Suspect]
     Indication: PROCEDURAL PAIN
     Dosage: 1-2 TABLETS 4-6 HOURS PO
     Route: 048
     Dates: start: 20090530, end: 20090530

REACTIONS (1)
  - VISION BLURRED [None]
